FAERS Safety Report 5627276-7 (Version None)
Quarter: 2008Q1

REPORT INFORMATION
  Report Type: 
  Country: None (occurrence: None)
  Receive Date: 20080125
  Receipt Date: 20070529
  Transmission Date: 20080703
  Serious: Yes (Hospitalization)
  Sender: FDA-Public Use
  Company Number: 2007RL000243

PATIENT
  Age: 62 Year
  Sex: Male

DRUGS (5)
  1. PROPAFENONE HCL [Suspect]
     Indication: ATRIAL FIBRILLATION
     Dosage: 600 MG;QD;PO, 450 MG;QD;PO
     Route: 048
  2. METOPROLOL SUCCINATE [Concomitant]
  3. STERCULIA [Concomitant]
  4. WARFARIN SODIUM [Concomitant]
  5. LEVOTHYROXINE SODIUM [Concomitant]

REACTIONS (2)
  - DIZZINESS [None]
  - NAUSEA [None]
